FAERS Safety Report 5722571-5 (Version None)
Quarter: 2008Q2

REPORT INFORMATION
  Report Type: 
  Country: None (occurrence: None)
  Receive Date: 20080429
  Receipt Date: 20070705
  Transmission Date: 20081010
  Serious: No
  Sender: FDA-Public Use
  Company Number: US-ASTRAZENECA-2007UW15747

PATIENT
  Age: 77 Year
  Sex: Female
  Weight: 63.5 kg

DRUGS (3)
  1. NEXIUM [Suspect]
     Indication: GASTROOESOPHAGEAL REFLUX DISEASE
     Route: 048
  2. CALCIUM SUPPLEMENT [Concomitant]
  3. FOSAMAX [Concomitant]

REACTIONS (4)
  - ABDOMINAL PAIN [None]
  - BONE DENSITY DECREASED [None]
  - CHOKING [None]
  - DYSPHAGIA [None]
